FAERS Safety Report 20463003 (Version 2)
Quarter: 2022Q1

REPORT INFORMATION
  Report Type: Spontaneous
  Country: JP (occurrence: JP)
  Receive Date: 20220211
  Receipt Date: 20220225
  Transmission Date: 20220423
  Serious: Yes (Disabling, Other)
  Sender: FDA-Public Use
  Company Number: JP-SENJU-202200141_BRNCK_1_P_1

PATIENT
  Age: 86 Year
  Sex: Female

DRUGS (4)
  1. BROMFENAC SODIUM [Suspect]
     Active Substance: BROMFENAC SODIUM
     Indication: Postoperative care
     Dosage: BOTH EYES, TWICE PER DAY
     Route: 047
     Dates: start: 20200904, end: 20200911
  2. RINDERON A [Suspect]
     Active Substance: BETAMETHASONE SODIUM PHOSPHATE\NEOMYCIN SULFATE
     Indication: Postoperative care
     Dosage: BOTH EYES, FOUR TIMES PER DAY
     Route: 047
     Dates: start: 20200904, end: 20200911
  3. MOXIFLOXACIN HYDROCHLORIDE [Concomitant]
     Active Substance: MOXIFLOXACIN HYDROCHLORIDE
     Indication: Infection prophylaxis
     Dosage: BOTH EYES, FOUR TIMES PER DAY
     Route: 047
     Dates: start: 20200904, end: 20200911
  4. LATANOPROST [Concomitant]
     Active Substance: LATANOPROST
     Indication: Product used for unknown indication
     Dosage: BOTH EYES
     Route: 047

REACTIONS (2)
  - Corneal perforation [Recovered/Resolved with Sequelae]
  - Corneal disorder [Recovered/Resolved]

NARRATIVE: CASE EVENT DATE: 20200911
